FAERS Safety Report 9158255 (Version 1)
Quarter: 2013Q1

REPORT INFORMATION
  Report Type: Spontaneous
  Country: US (occurrence: US)
  Receive Date: 20130312
  Receipt Date: 20130312
  Transmission Date: 20140127
  Serious: Yes (Hospitalization, Other)
  Sender: FDA-Public Use
  Company Number: US-BRISTOL-MYERS SQUIBB COMPANY-17440090

PATIENT
  Age: 93 Year
  Sex: Female
  Weight: 52.2 kg

DRUGS (2)
  1. COUMADIN [Suspect]
     Indication: PULMONARY EMBOLISM
     Dosage: COUAMDIN ALSO TAKEN IN SUBQ AS 1-60 MG
     Route: 048
     Dates: start: 1980
  2. DENOSUMAB [Suspect]
     Indication: OSTEOPOROSIS POSTMENOPAUSAL
     Route: 058
     Dates: start: 20121217

REACTIONS (4)
  - Localised infection [Unknown]
  - Gastrointestinal haemorrhage [Recovered/Resolved]
  - Pain in extremity [Unknown]
  - Diplegia [Unknown]
